FAERS Safety Report 9097463 (Version 1)
Quarter: 2013Q1

REPORT INFORMATION
  Report Type: Spontaneous
  Country: GB (occurrence: GB)
  Receive Date: 20130212
  Receipt Date: 20130212
  Transmission Date: 20140127
  Serious: Yes (Hospitalization, Other)
  Sender: FDA-Public Use
  Company Number: GB-TEVA-384703ISR

PATIENT
  Age: 93 Year
  Sex: Female

DRUGS (1)
  1. NITROFURANTOIN [Suspect]
     Indication: URINARY TRACT INFECTION
     Route: 048
     Dates: start: 201209, end: 20120910

REACTIONS (3)
  - Urosepsis [Unknown]
  - Treatment failure [Recovered/Resolved]
  - Medication error [Unknown]
